FAERS Safety Report 8933486 (Version 1)
Quarter: 2012Q4

REPORT INFORMATION
  Report Type: 
  Country: FR (occurrence: FR)
  Receive Date: 20121129
  Receipt Date: 20121129
  Transmission Date: 20130627
  Serious: Yes (Other)
  Sender: FDA-Public Use
  Company Number: FR-ROCHE-749289

PATIENT

DRUGS (1)
  1. RITUXIMAB [Suspect]
     Indication: ANTIVIRAL PROPHYLAXIS
     Route: 065
     Dates: start: 200501, end: 201001

REACTIONS (8)
  - Bacterial infection [Unknown]
  - Cytomegalovirus infection [Unknown]
  - Adenovirus infection [Unknown]
  - Herpes simplex [Unknown]
  - Aspergillosis [Unknown]
  - Pneumocystis jiroveci pneumonia [Unknown]
  - Toxoplasmosis [Unknown]
  - Acute graft versus host disease [Unknown]
